FAERS Safety Report 4853147-X (Version None)
Quarter: 2005Q4

REPORT INFORMATION
  Report Type: 
  Country: None (occurrence: None)
  Receive Date: 20051209
  Receipt Date: 20051128
  Transmission Date: 20060501
  Serious: Yes (Other)
  Sender: FDA-Public Use
  Company Number: 2005BI016241

PATIENT
  Age: 62 Year
  Sex: Male
  Weight: 72.5755 kg

DRUGS (4)
  1. AMEVIVE [Suspect]
     Indication: PSORIASIS
     Dosage: 15 MG; QW; IM
     Route: 030
     Dates: start: 20050516, end: 20050801
  2. HYDROXYZINE [Concomitant]
  3. ZYRTEC [Concomitant]
  4. MULTI-VITAMIN [Concomitant]

REACTIONS (6)
  - BLOOD TEST ABNORMAL [None]
  - CD4 LYMPHOCYTES ABNORMAL [None]
  - CD8 LYMPHOCYTES [None]
  - MYCOSIS FUNGOIDES [None]
  - SKIN EXFOLIATION [None]
  - T-CELL LYMPHOMA [None]
